FAERS Safety Report 9447357 (Version 1)
Quarter: 2013Q3

REPORT INFORMATION
  Report Type: Spontaneous
  Country: NL (occurrence: NL)
  Receive Date: 20130808
  Receipt Date: 20130808
  Transmission Date: 20140515
  Serious: Yes (Life-Threatening, Hospitalization, Other)
  Sender: FDA-Public Use
  Company Number: NL-ALEXION PHARMACEUTICALS INC.-A201301793

PATIENT
  Age: 64 Year
  Sex: Male

DRUGS (7)
  1. SOLIRIS 300MG [Suspect]
     Indication: PAROXYSMAL NOCTURNAL HAEMOGLOBINURIA
     Dosage: 600 MG, QW
     Route: 042
     Dates: start: 20080410, end: 20080508
  2. SOLIRIS 300MG [Suspect]
     Dosage: 900 MG, Q2W
     Route: 042
     Dates: start: 20080508
  3. OMEPRAZOL [Concomitant]
     Indication: VARICES OESOPHAGEAL
     Dosage: 40 MG, QD
     Route: 048
  4. CYANOCOBALAMIN [Concomitant]
     Indication: VITAMIN B12 DEFICIENCY
     Dosage: 1 MG, Q3MONTHS
     Route: 030
  5. FOLIC ACID [Concomitant]
     Indication: PAROXYSMAL NOCTURNAL HAEMOGLOBINURIA
     Dosage: 5 MG, QD
     Route: 048
  6. PROPANOLOL [Concomitant]
     Indication: VARICES OESOPHAGEAL
     Dosage: 20 MG, QD
     Route: 048
  7. TEMAZEPAM [Concomitant]
     Indication: SEDATION
     Dosage: 10 MG, QD
     Route: 048

REACTIONS (3)
  - Type 2 diabetes mellitus [Not Recovered/Not Resolved]
  - Phlebitis infective [Not Recovered/Not Resolved]
  - Sepsis [Not Recovered/Not Resolved]
